FAERS Safety Report 25479441 (Version 1)
Quarter: 2025Q2

REPORT INFORMATION
  Report Type: Report from Study
  Country: CN (occurrence: CN)
  Receive Date: 20250625
  Receipt Date: 20250625
  Transmission Date: 20250716
  Serious: Yes (Death, Other)
  Sender: GUERBET
  Company Number: CN-GUERBET / FUNDTRIP PHARMACEUTICALS-CN-20250206

PATIENT
  Age: 9 Day
  Sex: Female
  Weight: 2.6 kg

DRUGS (5)
  1. IODIZED OIL [Suspect]
     Active Substance: IODIZED OIL
     Indication: Therapeutic embolisation
     Route: 013
  2. DEVICE\GELATIN [Suspect]
     Active Substance: DEVICE\GELATIN
     Indication: Therapeutic embolisation
     Route: 013
  3. PROPRANOLOL [Concomitant]
     Active Substance: PROPRANOLOL HYDROCHLORIDE
     Indication: Drug therapy
     Route: 048
  4. METHYLPREDNISOLONE [Concomitant]
     Active Substance: METHYLPREDNISOLONE
     Indication: Drug therapy
     Route: 042
  5. BLEOMYCIN A5 [Concomitant]
     Active Substance: BLEOMYCIN A5
     Indication: Therapeutic embolisation
     Route: 013

REACTIONS (5)
  - Sudden cardiac death [Fatal]
  - Pulmonary embolism [Unknown]
  - Myocardial infarction [Unknown]
  - Device dislocation [Unknown]
  - Product use in unapproved indication [Unknown]
